FAERS Safety Report 23127143 (Version 1)
Quarter: 2023Q4

REPORT INFORMATION
  Report Type: Spontaneous
  Country: US (occurrence: US)
  Receive Date: 20231030
  Receipt Date: 20231030
  Transmission Date: 20240109
  Serious: No
  Sender: FDA-Public Use
  Company Number: US-SANOFI-01817455

PATIENT
  Age: 37 Year
  Sex: Female

DRUGS (9)
  1. DUPIXENT [Suspect]
     Active Substance: DUPILUMAB
     Indication: Eosinophilic oesophagitis
     Dosage: 300 MG, QOW
     Dates: start: 20231024
  2. SUMATRIPTAN [Concomitant]
     Active Substance: SUMATRIPTAN
     Indication: Migraine
  3. BACLOFEN [Concomitant]
     Active Substance: BACLOFEN
     Indication: Migraine
  4. MELOXICAM [Concomitant]
     Active Substance: MELOXICAM
     Indication: Menstrual disorder
  5. KETOCONAZOLE [Concomitant]
     Active Substance: KETOCONAZOLE
  6. MIRALAX [Concomitant]
     Active Substance: POLYETHYLENE GLYCOL 3350
  7. VITAMIN D NOS [Concomitant]
     Active Substance: VITAMIN D NOS
  8. IRON [Concomitant]
     Active Substance: IRON
  9. CYANOCOBALAMIN [Concomitant]
     Active Substance: CYANOCOBALAMIN

REACTIONS (3)
  - Injection site pain [Not Recovered/Not Resolved]
  - Injection site swelling [Not Recovered/Not Resolved]
  - Injection site erythema [Not Recovered/Not Resolved]

NARRATIVE: CASE EVENT DATE: 20231024
